FAERS Safety Report 16344822 (Version 2)
Quarter: 2019Q2

REPORT INFORMATION
  Report Type: Spontaneous
  Country: DE (occurrence: DE)
  Receive Date: 20190522
  Receipt Date: 20190610
  Transmission Date: 20190711
  Serious: Yes (Other)
  Sender: FDA-Public Use
  Company Number: PHHY2019DE116411

PATIENT
  Age: 37 Year
  Sex: Female

DRUGS (2)
  1. FLUOXETIN 1A PHARMA [Suspect]
     Active Substance: FLUOXETINE HYDROCHLORIDE
     Indication: DEPRESSED MOOD
     Dosage: 60 MG, QD
     Route: 065
     Dates: start: 2018
  2. FLUOXETIN 1A PHARMA [Suspect]
     Active Substance: FLUOXETINE HYDROCHLORIDE
     Indication: APATHY
     Dosage: 60 MG, QD
     Route: 065
     Dates: start: 201905

REACTIONS (7)
  - Trifascicular block [Unknown]
  - Headache [Unknown]
  - Arrhythmia [Unknown]
  - Atrioventricular block second degree [Unknown]
  - Cardiac valve sclerosis [Unknown]
  - Cardiac disorder [Unknown]
  - Dizziness [Unknown]
